FAERS Safety Report 8125097-7 (Version None)
Quarter: 2012Q1

REPORT INFORMATION
  Report Type: 
  Country: None (occurrence: None)
  Receive Date: 20120209
  Receipt Date: 20120125
  Transmission Date: 20120608
  Serious: Yes (Other)
  Sender: FDA-Public Use
  Company Number: US-ROCHE-1033709

PATIENT
  Sex: Male
  Weight: 68.8 kg

DRUGS (1)
  1. XELODA [Suspect]
     Indication: BRAIN STEM GLIOMA
     Dosage: LAST DOSE PRIOR TO SAE: 13/SEP/2011
     Route: 048
     Dates: start: 20110427

REACTIONS (1)
  - CENTRAL NERVOUS SYSTEM NECROSIS [None]
